FAERS Safety Report 21754984 (Version 1)
Quarter: 2022Q4

REPORT INFORMATION
  Report Type: Spontaneous
  Country: US (occurrence: US)
  Receive Date: 20221220
  Receipt Date: 20221220
  Transmission Date: 20230113
  Serious: No
  Sender: FDA-Public Use
  Company Number: US-BAYER-2022A170679

PATIENT
  Age: 69 Year
  Sex: Female

DRUGS (2)
  1. KERENDIA [Suspect]
     Active Substance: FINERENONE
     Indication: Type 2 diabetes mellitus
  2. DIOVAN [Suspect]
     Active Substance: VALSARTAN

REACTIONS (8)
  - Peripheral coldness [None]
  - Urinary straining [None]
  - Pollakiuria [None]
  - Urine abnormality [None]
  - Bladder pain [None]
  - Hot flush [None]
  - Myalgia [None]
  - Off label use [None]
